FAERS Safety Report 25099801 (Version 2)
Quarter: 2025Q3

REPORT INFORMATION
  Report Type: Spontaneous
  Country: US (occurrence: US)
  Receive Date: 20250320
  Receipt Date: 20250822
  Transmission Date: 20251020
  Serious: Yes (Other)
  Sender: BAYER HEALTHCARE PHARMACEUTICALS INC.
  Company Number: US-BAYER-2025A036776

PATIENT
  Age: 27 Year
  Sex: Male

DRUGS (3)
  1. KOVALTRY [Suspect]
     Active Substance: ANTIHEMOPHILIC FACTOR, HUMAN RECOMBINANT
     Indication: Haemorrhage
     Dosage: KOVALTRY 1155/3148 UNITS, INFUSE 4000 UNITS (+/-10%) EVERY OTHER DAY AND AS NEEDED FOR BLEEDING
  2. KOVALTRY [Suspect]
     Active Substance: ANTIHEMOPHILIC FACTOR, HUMAN RECOMBINANT
     Indication: Haemorrhage
     Dates: start: 20250214, end: 20250214
  3. KOVALTRY [Suspect]
     Active Substance: ANTIHEMOPHILIC FACTOR, HUMAN RECOMBINANT
     Indication: Haemorrhage
     Route: 042

REACTIONS (2)
  - Haemarthrosis [Not Recovered/Not Resolved]
  - Haemarthrosis [Not Recovered/Not Resolved]

NARRATIVE: CASE EVENT DATE: 20250214
